FAERS Safety Report 20572171 (Version 1)
Quarter: 2022Q1

REPORT INFORMATION
  Report Type: Report from Study
  Country: NL (occurrence: None)
  Receive Date: 20220309
  Receipt Date: 20220309
  Transmission Date: 20220423
  Serious: Yes (Hospitalization)
  Sender: FDA-Public Use
  Company Number: NL-Merck Healthcare KGaA-9304405

PATIENT
  Age: 50 Year
  Sex: Female

DRUGS (2)
  1. REBIF [Suspect]
     Active Substance: INTERFERON BETA-1A
     Indication: Relapsing-remitting multiple sclerosis
     Route: 058
  2. ESTRADIOL\NOMEGESTROL ACETATE [Concomitant]
     Active Substance: ESTRADIOL\NOMEGESTROL ACETATE
     Indication: Product used for unknown indication
     Dosage: ZOELY TABL COATED 1 X 1 TBL OF 2.5 MG/1.5 MG

REACTIONS (3)
  - Abdominal distension [Unknown]
  - Norovirus infection [Recovered/Resolved]
  - Fall [Unknown]
